FAERS Safety Report 7655380-0 (Version None)
Quarter: 2011Q3

REPORT INFORMATION
  Report Type: 
  Country: None (occurrence: None)
  Receive Date: 20110729
  Receipt Date: 20110716
  Transmission Date: 20111222
  Serious: Yes (Hospitalization)
  Sender: FDA-Public Use
  Company Number: 2011AP001528

PATIENT
  Age: 67 Year
  Sex: Female

DRUGS (3)
  1. RISPERIDONE [Suspect]
     Indication: DEPRESSION
     Dosage: 0.5 MG;QD ; 0.5 MG;BID
  2. PAROXETINE HYDROCHLORIDE [Suspect]
     Indication: DEPRESSION
  3. ESCITALOPRAM [Suspect]
     Indication: DEPRESSION

REACTIONS (2)
  - PARKINSONISM [None]
  - BRADYKINESIA [None]
